FAERS Safety Report 17362047 (Version 2)
Quarter: 2020Q1

REPORT INFORMATION
  Report Type: Report from Study
  Country: CA (occurrence: CA)
  Receive Date: 20200203
  Receipt Date: 20200305
  Transmission Date: 20200409
  Serious: Yes (Hospitalization)
  Sender: FDA-Public Use
  Company Number: PHHY2019CA198323

PATIENT
  Age: 5 Year
  Sex: Male

DRUGS (6)
  1. ILARIS [Suspect]
     Active Substance: CANAKINUMAB
     Indication: MEVALONATE KINASE DEFICIENCY
     Dosage: 55 OT, Q4W
     Route: 058
     Dates: start: 20190710
  2. ILARIS [Suspect]
     Active Substance: CANAKINUMAB
     Dosage: 45 OT, Q4W
     Route: 058
     Dates: start: 20190808
  3. ILARIS [Suspect]
     Active Substance: CANAKINUMAB
     Dosage: UNK
     Route: 065
     Dates: start: 20200131
  4. ILARIS [Suspect]
     Active Substance: CANAKINUMAB
     Dosage: 45 MG, Q4W
     Route: 058
     Dates: start: 20191004
  5. ILARIS [Suspect]
     Active Substance: CANAKINUMAB
     Dosage: 55 OT, Q4W
     Route: 058
     Dates: start: 20191218
  6. ILARIS [Suspect]
     Active Substance: CANAKINUMAB
     Dosage: 55 OT, Q4W
     Route: 058
     Dates: start: 20191108, end: 20191206

REACTIONS (9)
  - Malaise [Unknown]
  - Ear infection [Unknown]
  - Pyrexia [Unknown]
  - Nausea [Unknown]
  - Feeling abnormal [Recovered/Resolved]
  - Vomiting [Unknown]
  - Influenza [Unknown]
  - Rhinovirus infection [Recovering/Resolving]
  - Pyrexia [Recovered/Resolved]

NARRATIVE: CASE EVENT DATE: 2019
